FAERS Safety Report 4975314-7 (Version None)
Quarter: 2006Q2

REPORT INFORMATION
  Report Type: 
  Country: None (occurrence: None)
  Receive Date: 20060418
  Receipt Date: 20051005
  Transmission Date: 20061013
  Serious: Yes (Hospitalization)
  Sender: FDA-Public Use
  Company Number: US-MERCK-0510USA03597

PATIENT
  Age: 70 Year
  Sex: Female

DRUGS (4)
  1. VIOXX [Suspect]
     Indication: PAIN
     Route: 048
     Dates: start: 20000101, end: 20010901
  2. CLONIDINE [Concomitant]
     Indication: BLOOD PRESSURE
     Route: 065
  3. DYAZIDE [Concomitant]
     Indication: BLOOD PRESSURE
     Route: 065
  4. DARVOCET [Concomitant]
     Indication: PAIN
     Route: 065

REACTIONS (7)
  - ACUTE MYOCARDIAL INFARCTION [None]
  - ANXIETY [None]
  - BACTERAEMIA [None]
  - CORONARY ARTERY DISEASE [None]
  - DIABETES MELLITUS INADEQUATE CONTROL [None]
  - MUSCULOSKELETAL CHEST PAIN [None]
  - URINARY TRACT INFECTION [None]
